FAERS Safety Report 17459217 (Version 1)
Quarter: 2020Q1

REPORT INFORMATION
  Report Type: Spontaneous
  Country: PL (occurrence: PL)
  Receive Date: 20200226
  Receipt Date: 20200226
  Transmission Date: 20200409
  Serious: Yes (Hospitalization, Other)
  Sender: FDA-Public Use
  Company Number: NVSC2019PL035081

PATIENT
  Age: 87 Year
  Sex: Female

DRUGS (8)
  1. CIPROFLOXACIN. [Suspect]
     Active Substance: CIPROFLOXACIN
     Indication: FUNGAL PERITONITIS
     Dosage: UNK
     Route: 042
  2. METRONIDAZOLE. [Suspect]
     Active Substance: METRONIDAZOLE
     Indication: FUNGAL PERITONITIS
     Dosage: UNK
     Route: 042
  3. CEFTAZIDIME. [Suspect]
     Active Substance: CEFTAZIDIME
     Indication: FUNGAL PERITONITIS
     Dosage: UNK
     Route: 033
  4. FLUCONAZOLE. [Suspect]
     Active Substance: FLUCONAZOLE
     Dosage: UNK (AFTER TENCKHOFF CATHETER REMOVAL)
     Route: 051
  5. CEFAZOLIN [Suspect]
     Active Substance: CEFAZOLIN
     Indication: FUNGAL PERITONITIS
     Dosage: UNK
     Route: 033
  6. AMOXICILLIN. [Suspect]
     Active Substance: AMOXICILLIN
     Indication: UPPER RESPIRATORY TRACT INFECTION
     Dosage: UNK, UNKNOWN FREQ.
     Route: 065
  7. FLUCONAZOLE. [Suspect]
     Active Substance: FLUCONAZOLE
     Indication: FUNGAL PERITONITIS
     Dosage: 200 MG, QD
     Route: 033
  8. MEROPENEM. [Suspect]
     Active Substance: MEROPENEM
     Indication: FUNGAL PERITONITIS
     Dosage: UNK
     Route: 065

REACTIONS (2)
  - Condition aggravated [Recovering/Resolving]
  - Peritonitis [Recovering/Resolving]
